FAERS Safety Report 13034575 (Version 3)
Quarter: 2018Q3

REPORT INFORMATION
  Report Type: Spontaneous
  Country: ES (occurrence: ES)
  Receive Date: 20161216
  Receipt Date: 20180920
  Transmission Date: 20181010
  Serious: Yes (Other)
  Sender: FDA-Public Use
  Company Number: ES-SA-2016SA226015

PATIENT
  Age: 44 Year
  Sex: Female

DRUGS (1)
  1. AUBAGIO [Suspect]
     Active Substance: TERIFLUNOMIDE
     Indication: MULTIPLE SCLEROSIS
     Dosage: 14 MG, QD
     Route: 048
     Dates: start: 20140611, end: 20161025

REACTIONS (6)
  - Hepatic steatosis [Unknown]
  - Hyperlipidaemia [Recovered/Resolved]
  - Hypertriglyceridaemia [Recovered/Resolved]
  - Mixed liver injury [Recovering/Resolving]
  - Abdominal discomfort [Unknown]
  - Blood cholesterol increased [Recovering/Resolving]

NARRATIVE: CASE EVENT DATE: 201511
